FAERS Safety Report 14373401 (Version 1)
Quarter: 2018Q1

REPORT INFORMATION
  Report Type: Spontaneous
  Country: US (occurrence: US)
  Receive Date: 20180109
  Receipt Date: 20180109
  Transmission Date: 20180509
  Serious: Yes (Other)
  Sender: FDA-Public Use
  Company Number: None

PATIENT
  Age: 43 Year
  Sex: Female
  Weight: 97.7 kg

DRUGS (1)
  1. GAMUNEX-C [Suspect]
     Active Substance: HUMAN IMMUNOGLOBULIN G
     Indication: IMMUNODEFICIENCY COMMON VARIABLE
     Dosage: 1MG INFUSE 8G WEEKLY SUBCUTANEOUSLY
     Route: 058
     Dates: start: 20170921, end: 20170925

REACTIONS (7)
  - Headache [None]
  - Pallor [None]
  - Malaise [None]
  - Fatigue [None]
  - Product substitution issue [None]
  - Skin disorder [None]
  - Pain [None]

NARRATIVE: CASE EVENT DATE: 20171015
